FAERS Safety Report 22215899 (Version 1)
Quarter: 2023Q2

REPORT INFORMATION
  Report Type: Spontaneous
  Country: JP (occurrence: JP)
  Receive Date: 20230417
  Receipt Date: 20230417
  Transmission Date: 20230722
  Serious: Yes (Hospitalization, Other)
  Sender: FDA-Public Use
  Company Number: JP-MSD-2304JPN001422J

PATIENT
  Age: 4 Decade
  Sex: Male
  Weight: 63 kg

DRUGS (34)
  1. STROMECTOL [Suspect]
     Active Substance: IVERMECTIN
     Indication: Disseminated strongyloidiasis
     Dosage: 12 MILLIGRAM /DAY
     Route: 048
  2. STROMECTOL [Suspect]
     Active Substance: IVERMECTIN
     Dosage: 200 3J/KJ/DAY
     Route: 048
  3. STROMECTOL [Suspect]
     Active Substance: IVERMECTIN
     Dosage: 200 3J/KJ/DAY
     Route: 048
  4. STROMECTOL [Suspect]
     Active Substance: IVERMECTIN
     Dosage: 200 3J/KJ/DAY
     Route: 048
  5. STROMECTOL [Suspect]
     Active Substance: IVERMECTIN
     Dosage: 200 3J/KJ/DAY
     Route: 048
  6. CUBICIN [Suspect]
     Active Substance: DAPTOMYCIN
     Dosage: 400 MILLIGRAM, EVERY 48 HOURS
     Route: 051
  7. RIFAMPIN [Concomitant]
     Active Substance: RIFAMPIN
     Indication: Lepromatous leprosy
     Dosage: 600 MILLIGRAM, QM
     Route: 065
  8. DAPSONE [Concomitant]
     Active Substance: DAPSONE
     Indication: Lepromatous leprosy
     Dosage: 100 MILLIGRAM /DAY
     Route: 065
  9. CLOFAZIMINE [Concomitant]
     Active Substance: CLOFAZIMINE
     Indication: Lepromatous leprosy
     Dosage: 300 MILLIGRAM, QM
     Route: 065
  10. CLOFAZIMINE [Concomitant]
     Active Substance: CLOFAZIMINE
     Dosage: 50 MILLIGRAM /DAY
  11. PREDNISOLONE [Concomitant]
     Active Substance: PREDNISOLONE
     Indication: Type 2 lepra reaction
     Dosage: 15 MILLIGRAM /DAY
     Route: 065
  12. PREDNISOLONE [Concomitant]
     Active Substance: PREDNISOLONE
     Dosage: 5 MILLIGRAM /DAY
     Route: 065
  13. PREDNISOLONE [Concomitant]
     Active Substance: PREDNISOLONE
     Dosage: 10 MILLIGRAM/ DAY
     Route: 065
  14. PREDNISOLONE [Concomitant]
     Active Substance: PREDNISOLONE
     Dosage: 40 MILLIGRAM /DAY
     Route: 065
  15. PREDNISOLONE [Concomitant]
     Active Substance: PREDNISOLONE
     Dosage: 30 MILLIGRAM /DAY
     Route: 065
  16. PREDNISOLONE [Concomitant]
     Active Substance: PREDNISOLONE
     Dosage: 25 MILLIGRAM /DAY
     Route: 065
  17. PREDNISOLONE [Concomitant]
     Active Substance: PREDNISOLONE
     Dosage: 15 MILLIGRAM /DAY
     Route: 065
  18. MEROPENEM [Concomitant]
     Active Substance: MEROPENEM
     Indication: Pseudomonas infection
     Dosage: 1 GRAM, Q8H
     Route: 065
  19. MEROPENEM [Concomitant]
     Active Substance: MEROPENEM
     Indication: Disseminated strongyloidiasis
     Dosage: 1 GRAM, Q12H
     Route: 065
  20. MEROPENEM [Concomitant]
     Active Substance: MEROPENEM
     Dosage: 1 GRAM, Q12H
     Route: 065
  21. AMIKACIN SULFATE [Concomitant]
     Active Substance: AMIKACIN SULFATE
     Indication: Disseminated strongyloidiasis
     Dosage: 600 MILLIGRAM, Q12H
     Route: 065
  22. VANCOMYCIN HYDROCHLORIDE [Concomitant]
     Active Substance: VANCOMYCIN HYDROCHLORIDE
     Dosage: 1000 MILLIGRAM
     Route: 065
  23. VANCOMYCIN HYDROCHLORIDE [Concomitant]
     Active Substance: VANCOMYCIN HYDROCHLORIDE
     Dosage: 500 MILLIGRAM, Q24H
     Route: 065
  24. VANCOMYCIN HYDROCHLORIDE [Concomitant]
     Active Substance: VANCOMYCIN HYDROCHLORIDE
     Dosage: 500 MILLIGRAM, Q24H
     Route: 065
  25. MICAFUNGIN SODIUM [Concomitant]
     Active Substance: MICAFUNGIN SODIUM
     Dosage: 100 MILLIGRAM, Q24H
     Route: 065
  26. GANCICLOVIR [Concomitant]
     Active Substance: GANCICLOVIR
     Dosage: 150 MILLIGRAM, Q24H
     Route: 065
  27. CEFMETAZOLE SODIUM [Concomitant]
     Active Substance: CEFMETAZOLE SODIUM
     Dosage: 1 GRAM, Q24H
     Route: 065
  28. SULFAMETHOXAZOLE\TRIMETHOPRIM [Concomitant]
     Active Substance: SULFAMETHOXAZOLE\TRIMETHOPRIM
     Dosage: T: 160 MILLIGRAM, Q24H
     Route: 051
  29. AMPHOTERICIN B [Concomitant]
     Active Substance: AMPHOTERICIN B
     Dosage: 250 MILLIGRAM, Q24H
     Route: 065
  30. HYDROCORTISONE [Concomitant]
     Active Substance: HYDROCORTISONE
     Dosage: 200 MILLIGRAM /DAY
     Route: 065
  31. HYDROCORTISONE [Concomitant]
     Active Substance: HYDROCORTISONE
     Dosage: 100 MILLIGRAM /DAY
     Route: 065
  32. HYDROCORTISONE [Concomitant]
     Active Substance: HYDROCORTISONE
     Dosage: 50 MILLIGRAM DAY
     Route: 065
  33. HYDROCORTISONE [Concomitant]
     Active Substance: HYDROCORTISONE
     Dosage: 200 MILLIGRAM /DAY
     Route: 065
  34. HYDROCORTISONE [Concomitant]
     Active Substance: HYDROCORTISONE
     Dosage: 150 MILLIGRAM /DAY
     Route: 065

REACTIONS (3)
  - Drug-induced liver injury [Unknown]
  - Inappropriate schedule of product administration [Unknown]
  - Overdose [Unknown]
